FAERS Safety Report 13110732 (Version 1)
Quarter: 2017Q1

REPORT INFORMATION
  Report Type: Report from Study
  Country: US (occurrence: US)
  Receive Date: 20170112
  Receipt Date: 20170112
  Transmission Date: 20170428
  Serious: Yes (Death, Other)
  Sender: FDA-Public Use
  Company Number: US-TAKEDA-2017MPI000296

PATIENT

DRUGS (1)
  1. VELCADE [Suspect]
     Active Substance: BORTEZOMIB
     Indication: BREAST CANCER METASTATIC
     Dosage: 1.5 MG/M2, Q2WEEKS
     Route: 042

REACTIONS (1)
  - Oncologic complication [Fatal]
